FAERS Safety Report 6888817-5 (Version None)
Quarter: 2010Q3

REPORT INFORMATION
  Report Type: 
  Country: None (occurrence: None)
  Receive Date: 20100730
  Receipt Date: 20071107
  Transmission Date: 20110219
  Serious: No
  Sender: FDA-Public Use
  Company Number: US-PFIZER INC-2007083377

PATIENT
  Sex: Male
  Weight: 132.45 kg

DRUGS (4)
  1. LIPITOR [Suspect]
     Indication: BLOOD CHOLESTEROL
     Route: 048
     Dates: start: 20000522, end: 20070922
  2. AVODART [Concomitant]
     Indication: PROSTATIC DISORDER
     Route: 048
  3. ZETIA [Concomitant]
     Route: 048
  4. TAMSULOSIN HYDROCHLORIDE [Concomitant]
     Dosage: 3 EVERY 1 WEEKS
     Route: 048

REACTIONS (3)
  - BACK PAIN [None]
  - MYALGIA [None]
  - PAIN IN EXTREMITY [None]
